FAERS Safety Report 19774052 (Version 1)
Quarter: 2021Q3

REPORT INFORMATION
  Report Type: Spontaneous
  Country: FR (occurrence: FR)
  Receive Date: 20210901
  Receipt Date: 20210901
  Transmission Date: 20211014
  Serious: Yes (Hospitalization)
  Sender: FDA-Public Use
  Company Number: FR-TEVA-2021-FR-1946337

PATIENT
  Age: 58 Year
  Sex: Male
  Weight: 84 kg

DRUGS (6)
  1. ETOPOSIDE. [Suspect]
     Active Substance: ETOPOSIDE
     Indication: ACUTE MYELOID LEUKAEMIA
     Dosage: 150 MG/M2
     Route: 051
     Dates: start: 20100826, end: 20100830
  2. AMSALYO 75 MG, POUDRE POUR SOLUTION POUR PERFUSION [Suspect]
     Active Substance: AMSACRINE
     Indication: ACUTE MYELOID LEUKAEMIA
     Dosage: 150 MG/M2
     Route: 051
     Dates: start: 20100826, end: 20100830
  3. CYTARABINE. [Suspect]
     Active Substance: CYTARABINE
     Indication: ACUTE MYELOID LEUKAEMIA
     Dosage: 100 MG/M2
     Route: 051
     Dates: start: 20100311, end: 20100709
  4. MITOXANTRONE BASE [Suspect]
     Active Substance: MITOXANTRONE HYDROCHLORIDE
     Indication: ACUTE MYELOID LEUKAEMIA
     Dosage: 12 MG/M2
     Route: 051
     Dates: start: 20100517, end: 20100706
  5. DAUNORUBICINE [Suspect]
     Active Substance: DAUNORUBICIN
     Indication: ACUTE MYELOID LEUKAEMIA
     Dosage: 60 MG/M2
     Route: 051
     Dates: start: 20100311, end: 20100416
  6. MYLOTARG [Suspect]
     Active Substance: GEMTUZUMAB OZOGAMICIN
     Indication: ACUTE MYELOID LEUKAEMIA
     Dosage: 6 MG/M2
     Route: 051
     Dates: start: 20100315, end: 20100521

REACTIONS (2)
  - Acute myeloid leukaemia [Not Recovered/Not Resolved]
  - Leukaemia recurrent [Not Recovered/Not Resolved]

NARRATIVE: CASE EVENT DATE: 202107
